FAERS Safety Report 5441927-1 (Version None)
Quarter: 2007Q3

REPORT INFORMATION
  Report Type: 
  Country: None (occurrence: None)
  Receive Date: 20070830
  Receipt Date: 20070830
  Transmission Date: 20080115
  Serious: Yes (Death)
  Sender: FDA-Public Use
  Company Number: None

PATIENT
  Age: 69 Year
  Sex: Female
  Weight: 45.3597 kg

DRUGS (1)
  1. LEVOTHYROXINE SODIUM [Suspect]
     Indication: HYPOTHYROIDISM
     Dosage: VARIED FROM MANY SOURCES
     Dates: start: 20070402, end: 20070807

REACTIONS (10)
  - ARRHYTHMIA [None]
  - ASTHENIA [None]
  - CARDIAC ARREST [None]
  - CARDIAC FAILURE [None]
  - COORDINATION ABNORMAL [None]
  - DIARRHOEA [None]
  - ILL-DEFINED DISORDER [None]
  - LUNG DISORDER [None]
  - NO THERAPEUTIC RESPONSE [None]
  - TACHYCARDIA [None]
